FAERS Safety Report 16802451 (Version 15)
Quarter: 2020Q3

REPORT INFORMATION
  Report Type: Spontaneous
  Country: US (occurrence: US)
  Receive Date: 20190912
  Receipt Date: 20200717
  Transmission Date: 20201102
  Serious: No
  Sender: FDA-Public Use
  Company Number: US-ACTELION-A-NJ2019-195206

PATIENT
  Age: 53 Year
  Sex: Female
  Weight: 102.04 kg

DRUGS (8)
  1. ADEMPAS [Suspect]
     Active Substance: RIOCIGUAT
     Indication: PRODUCT USED FOR UNKNOWN INDICATION
     Dosage: 0.5 MG, TID
     Route: 065
  2. OPSUMIT [Suspect]
     Active Substance: MACITENTAN
     Dosage: 10 MG, QD
     Route: 048
  3. UPTRAVI [Suspect]
     Active Substance: SELEXIPAG
     Dosage: 1000 MCG, BID
     Route: 048
  4. UPTRAVI [Suspect]
     Active Substance: SELEXIPAG
     Indication: PULMONARY ARTERIAL HYPERTENSION
     Dosage: 1600 MCG, QD
     Route: 048
  5. ADEMPAS [Suspect]
     Active Substance: RIOCIGUAT
     Dosage: 1.5 MG, TID
     Route: 065
  6. DILTIAZEM. [Concomitant]
     Active Substance: DILTIAZEM
  7. OPSUMIT [Suspect]
     Active Substance: MACITENTAN
     Indication: PULMONARY ARTERIAL HYPERTENSION
     Dosage: 10 MG, QD
     Route: 048
     Dates: start: 20190825
  8. ADCIRCA [Concomitant]
     Active Substance: TADALAFIL

REACTIONS (26)
  - Migraine [Recovered/Resolved]
  - Headache [Unknown]
  - Nasal congestion [Unknown]
  - Therapy non-responder [Unknown]
  - Pain [Unknown]
  - Depression [Unknown]
  - Muscular weakness [Unknown]
  - Malaise [Unknown]
  - Poor quality sleep [Not Recovered/Not Resolved]
  - Anxiety [Unknown]
  - Presyncope [Unknown]
  - Hypotension [Unknown]
  - Pain in extremity [Recovering/Resolving]
  - Weight increased [Unknown]
  - Somnolence [Not Recovered/Not Resolved]
  - Muscle spasms [Recovering/Resolving]
  - Fall [Unknown]
  - Influenza [Unknown]
  - Dyspnoea exertional [Unknown]
  - Dizziness [Unknown]
  - Nausea [Unknown]
  - Fatigue [Not Recovered/Not Resolved]
  - Syncope [Unknown]
  - Sinusitis [Unknown]
  - Decreased appetite [Unknown]
  - Oropharyngeal pain [Not Recovered/Not Resolved]

NARRATIVE: CASE EVENT DATE: 20190825
